FAERS Safety Report 5656355-3 (Version None)
Quarter: 2008Q1

REPORT INFORMATION
  Report Type: 
  Country: None (occurrence: None)
  Receive Date: 20080309
  Receipt Date: 20071203
  Transmission Date: 20080703
  Serious: No
  Sender: FDA-Public Use
  Company Number: US-BAYER-200714028BCC

PATIENT
  Age: 65 Year
  Sex: Female
  Weight: 71 kg

DRUGS (7)
  1. ALEVE [Suspect]
     Indication: PAIN IN EXTREMITY
     Dosage: AS USED: 220 MG  UNIT DOSE: 220 MG
     Route: 048
     Dates: start: 20071126, end: 20071201
  2. TYLENOL (CAPLET) [Suspect]
     Indication: PAIN IN EXTREMITY
  3. VITAMIN CAP [Concomitant]
  4. GLUCOSAMINE [Concomitant]
  5. CALCIUM [Concomitant]
     Route: 048
  6. ACIDOPHILUS [Concomitant]
  7. ASPIRIN [Concomitant]

REACTIONS (3)
  - ABDOMINAL DISCOMFORT [None]
  - NAUSEA [None]
  - STOMACH DISCOMFORT [None]
